FAERS Safety Report 13162032 (Version 2)
Quarter: 2017Q1

REPORT INFORMATION
  Report Type: Spontaneous
  Country: US (occurrence: US)
  Receive Date: 20170130
  Receipt Date: 20170216
  Transmission Date: 20170428
  Serious: No
  Sender: FDA-Public Use
  Company Number: US-PFIZER INC-2017034790

PATIENT
  Age: 66 Year
  Sex: Female

DRUGS (1)
  1. IBRANCE [Suspect]
     Active Substance: PALBOCICLIB
     Indication: BREAST CANCER FEMALE
     Dosage: 125 MG, CYCLIC (ONCE DAILY FOR 21 DAYS THEN 7 DAYS OFF)
     Route: 048
     Dates: start: 20170103, end: 20170124

REACTIONS (7)
  - Alopecia [Unknown]
  - Bone pain [Unknown]
  - Pain in extremity [Unknown]
  - Discomfort [Unknown]
  - Muscle spasms [Unknown]
  - Arthralgia [Unknown]
  - Cough [Unknown]
